FAERS Safety Report 8241641-3 (Version None)
Quarter: 2012Q1

REPORT INFORMATION
  Report Type: 
  Country: None (occurrence: None)
  Receive Date: 20120328
  Receipt Date: 20120313
  Transmission Date: 20120608
  Serious: Yes (Hospitalization, Disabling, Other)
  Sender: FDA-Public Use
  Company Number: GB-WATSON-2012-04995

PATIENT
  Age: 46 Year
  Sex: Male

DRUGS (2)
  1. FLUCLOXACILLIN [Concomitant]
     Indication: NAIL INFECTION
  2. SIMVASTATIN [Suspect]
     Indication: HYPERCHOLESTEROLAEMIA
     Dosage: UNK
     Route: 048
     Dates: start: 20120208, end: 20120227

REACTIONS (6)
  - WEIGHT DECREASED [None]
  - POLYURIA [None]
  - DIABETES MELLITUS [None]
  - FATIGUE [None]
  - POLYDIPSIA [None]
  - DRY MOUTH [None]
